FAERS Safety Report 6133492-0 (Version None)
Quarter: 2009Q1

REPORT INFORMATION
  Report Type: 
  Country: None (occurrence: None)
  Receive Date: 20090324
  Receipt Date: 20090324
  Transmission Date: 20090719
  Serious: Yes (Hospitalization)
  Sender: FDA-Public Use
  Company Number: None

PATIENT
  Age: 65 Year
  Sex: Female

DRUGS (1)
  1. CYTARABINE [Suspect]
     Dosage: 143 MG ONCE IV
     Route: 042
     Dates: start: 20090219, end: 20090221

REACTIONS (2)
  - ANAEMIA [None]
  - THROMBOCYTOPENIA [None]
